FAERS Safety Report 6485294-3 (Version None)
Quarter: 2009Q4

REPORT INFORMATION
  Report Type: 
  Country: None (occurrence: None)
  Receive Date: 20091209
  Receipt Date: 20090619
  Transmission Date: 20100525
  Serious: No
  Sender: FDA-Public Use
  Company Number: US-AMGEN-KDL352352

PATIENT

DRUGS (2)
  1. ENBREL [Suspect]
     Indication: PSORIATIC ARTHROPATHY
  2. KENALOG [Concomitant]

REACTIONS (3)
  - DRUG INEFFECTIVE [None]
  - NOCARDIOSIS [None]
  - RASH PUSTULAR [None]
